FAERS Safety Report 5475372-X (Version None)
Quarter: 2007Q4

REPORT INFORMATION
  Report Type: 
  Country: None (occurrence: None)
  Receive Date: 20071003
  Receipt Date: 20070326
  Transmission Date: 20080405
  Serious: Yes (Hospitalization)
  Sender: FDA-Public Use
  Company Number: FR-BAXTER-2007BH003183

PATIENT
  Age: 46 Year
  Sex: Male

DRUGS (5)
  1. EXTRANEAL [Suspect]
     Indication: PERITONEAL DIALYSIS
     Dosage: DOSE UNIT:UNKNOWN
     Route: 033
     Dates: start: 20030429, end: 20051209
  2. PHYSIOSOL IN PLASTIC CONTAINER [Suspect]
     Indication: PERITONEAL DIALYSIS
     Dosage: DOSE UNIT:UNKNOWN
     Route: 033
     Dates: start: 20030429, end: 20051209
  3. PROGRAF [Suspect]
     Indication: RENAL TRANSPLANT
     Dosage: DOSE UNIT:UNKNOWN
     Route: 065
     Dates: start: 20051209
  4. AMLODIPINE [Concomitant]
  5. PANTOPRAZOLE SODIUM [Concomitant]

REACTIONS (3)
  - ASCITES [None]
  - INTESTINAL OBSTRUCTION [None]
  - SCLEROSING ENCAPSULATING PERITONITIS [None]
